FAERS Safety Report 8343138-9 (Version None)
Quarter: 2012Q2

REPORT INFORMATION
  Report Type: 
  Country: None (occurrence: None)
  Receive Date: 20120508
  Receipt Date: 20120502
  Transmission Date: 20120825
  Serious: Yes (Hospitalization)
  Sender: FDA-Public Use
  Company Number: US-PFIZER INC-2010160752

PATIENT
  Sex: Female
  Weight: 65.7 kg

DRUGS (7)
  1. TACROLIMUS [Suspect]
     Indication: IMMUNOSUPPRESSION
     Dosage: 3 MG, 2X/DAY
     Route: 048
     Dates: start: 20100725
  2. HYDRALAZINE [Concomitant]
     Indication: HYPERTENSION
     Dosage: 50 MG, AS NEEDED
     Route: 048
     Dates: start: 20100910
  3. SIMVASTATIN [Concomitant]
     Indication: HYPERLIPIDAEMIA
     Dosage: 40 MG, 1X/DAY
     Route: 048
     Dates: start: 20100727
  4. GLIPIZIDE [Suspect]
     Indication: DIABETES MELLITUS
     Dosage: 25 MG, 1X/DAY
     Route: 048
     Dates: start: 20101118, end: 20101126
  5. NIFEDIPINE [Suspect]
     Indication: HYPERTENSION
     Dosage: 30 MG, 1X/DAY
     Route: 048
     Dates: start: 20101118, end: 20101126
  6. METOPROLOL [Concomitant]
     Indication: HYPERTENSION
     Dosage: 50 MG, 2X/DAY
     Route: 048
     Dates: start: 20100726
  7. MYFORTIC [Concomitant]
     Indication: IMMUNOSUPPRESSION
     Dosage: 70 MG, 2X/DAY
     Route: 048
     Dates: start: 20100725

REACTIONS (1)
  - VOMITING [None]
